FAERS Safety Report 7421879-5 (Version None)
Quarter: 2011Q2

REPORT INFORMATION
  Report Type: 
  Country: None (occurrence: None)
  Receive Date: 20110418
  Receipt Date: 20091207
  Transmission Date: 20111010
  Serious: Yes (Other)
  Sender: FDA-Public Use
  Company Number: DE-GENENTECH-294734

PATIENT
  Sex: Female

DRUGS (4)
  1. LUCENTIS [Suspect]
     Dosage: UNK
     Route: 031
     Dates: start: 20090201
  2. LUCENTIS [Suspect]
     Dosage: UNK
     Route: 031
     Dates: start: 20091105
  3. LUCENTIS [Suspect]
     Indication: MACULAR DEGENERATION
     Dosage: UNK
     Route: 031
     Dates: start: 20090119
  4. LUCENTIS [Suspect]
     Dosage: UNK
     Route: 031
     Dates: start: 20090301

REACTIONS (7)
  - HEADACHE [None]
  - ANGINA PECTORIS [None]
  - NERVE COMPRESSION [None]
  - RENAL FUNCTION TEST ABNORMAL [None]
  - NASOPHARYNGITIS [None]
  - VISUAL ACUITY REDUCED [None]
  - DRUG INEFFECTIVE [None]
